FAERS Safety Report 11105372 (Version 1)
Quarter: 2015Q2

REPORT INFORMATION
  Report Type: Spontaneous
  Country: CA (occurrence: CA)
  Receive Date: 20150512
  Receipt Date: 20150512
  Transmission Date: 20150821
  Serious: Yes (Hospitalization, Other)
  Sender: FDA-Public Use
  Company Number: CA-ROCHE-1574370

PATIENT
  Age: 76 Year
  Sex: Female

DRUGS (12)
  1. CELEBREX [Suspect]
     Active Substance: CELECOXIB
     Indication: RHEUMATOID ARTHRITIS
     Route: 065
  2. METHOTREXATE [Suspect]
     Active Substance: METHOTREXATE
     Indication: RHEUMATOID ARTHRITIS
     Route: 065
  3. HUMIRA [Concomitant]
     Active Substance: ADALIMUMAB
  4. ORENCIA [Concomitant]
     Active Substance: ABATACEPT
  5. ACTEMRA [Suspect]
     Active Substance: TOCILIZUMAB
     Indication: RHEUMATOID ARTHRITIS
     Route: 042
  6. ENBREL [Suspect]
     Active Substance: ETANERCEPT
     Indication: RHEUMATOID ARTHRITIS
     Route: 065
  7. ARAVA [Concomitant]
     Active Substance: LEFLUNOMIDE
  8. ACTEMRA [Suspect]
     Active Substance: TOCILIZUMAB
     Route: 058
  9. SALAZOPYRIN [Concomitant]
     Active Substance: SULFASALAZINE
  10. REMICADE [Concomitant]
     Active Substance: INFLIXIMAB
  11. RITUXAN [Suspect]
     Active Substance: RITUXIMAB
     Indication: RHEUMATOID ARTHRITIS
     Route: 065
  12. ACTEMRA [Suspect]
     Active Substance: TOCILIZUMAB
     Indication: RHEUMATOID ARTHRITIS
     Route: 058

REACTIONS (9)
  - Spinal fracture [Unknown]
  - Localised infection [Unknown]
  - Fibromyalgia [Unknown]
  - Fracture [Unknown]
  - Mobility decreased [Unknown]
  - Pelvic fracture [Unknown]
  - Osteoporosis [Unknown]
  - Drug ineffective [Unknown]
  - Inflammatory marker increased [Unknown]
